FAERS Safety Report 7112706-4 (Version None)
Quarter: 2010Q4

REPORT INFORMATION
  Report Type: 
  Country: None (occurrence: None)
  Receive Date: 20101119
  Receipt Date: 20101109
  Transmission Date: 20110411
  Serious: Yes (Other)
  Sender: FDA-Public Use
  Company Number: PHHY2010IT76507

PATIENT
  Sex: Female

DRUGS (3)
  1. EXELON [Suspect]
     Indication: DEMENTIA ALZHEIMER'S TYPE
     Dosage: 9.5 MG, QD
     Route: 062
     Dates: start: 20100827, end: 20100902
  2. EXELON [Suspect]
     Dosage: 4.6 MG, QD
     Route: 062
     Dates: start: 20100903
  3. CONTROL [Concomitant]
     Dosage: 1 MG, UNK
     Route: 048

REACTIONS (2)
  - AGGRESSION [None]
  - HALLUCINATION [None]
